FAERS Safety Report 10291759 (Version 1)
Quarter: 2014Q3

REPORT INFORMATION
  Report Type: Spontaneous
  Country: US (occurrence: US)
  Receive Date: 20140710
  Receipt Date: 20140710
  Transmission Date: 20150326
  Serious: No
  Sender: FDA-Public Use
  Company Number: US-PURDUE-USA-2013-0106198

PATIENT
  Age: 25 Year
  Sex: Female

DRUGS (2)
  1. BUTRANS [Suspect]
     Active Substance: BUPRENORPHINE
     Indication: NEURALGIA
     Dosage: 5 MCG/HR, WEEKLY
     Route: 062
     Dates: start: 20130827
  2. GABAPENTIN. [Concomitant]
     Active Substance: GABAPENTIN
     Indication: NEURALGIA

REACTIONS (5)
  - Nausea [Unknown]
  - Drug ineffective [Unknown]
  - Feeling abnormal [Unknown]
  - Sedation [Unknown]
  - Vomiting [Unknown]

NARRATIVE: CASE EVENT DATE: 20130828
